FAERS Safety Report 10050084 (Version 1)
Quarter: 2014Q1

REPORT INFORMATION
  Report Type: Spontaneous
  Country: US (occurrence: None)
  Receive Date: 20140331
  Receipt Date: 20140331
  Transmission Date: 20141002
  Serious: Yes (Other)
  Sender: FDA-Public Use
  Company Number: None

PATIENT
  Age: 67 Year
  Sex: Male

DRUGS (2)
  1. ZYTIGA [Suspect]
     Route: 048
     Dates: start: 20131023
  2. ZYTIGA [Suspect]
     Route: 048
     Dates: start: 20131023

REACTIONS (1)
  - Eye disorder [None]
